FAERS Safety Report 17388561 (Version 4)
Quarter: 2020Q2

REPORT INFORMATION
  Report Type: Spontaneous
  Country: US (occurrence: US)
  Receive Date: 20200207
  Receipt Date: 20200403
  Transmission Date: 20200713
  Serious: No
  Sender: FDA-Public Use
  Company Number: US-PFIZER INC-2020053155

PATIENT
  Age: 3 Year
  Sex: Male
  Weight: 14.51 kg

DRUGS (2)
  1. PHOSPHOLINE IODIDE [Suspect]
     Active Substance: ECHOTHIOPHATE IODIDE
     Dosage: 2 GTT, 2X/DAY (1 DROP IN BOTH TWICE A DAY)
     Dates: start: 201911
  2. PHOSPHOLINE IODIDE [Suspect]
     Active Substance: ECHOTHIOPHATE IODIDE
     Dosage: 2 GTT, 2X/DAY (1 DROP IN EACH EYE)
     Dates: start: 20191201, end: 20200220

REACTIONS (3)
  - Therapeutic response unexpected [Unknown]
  - Pre-existing condition improved [Unknown]
  - Eye disorder [Recovered/Resolved]

NARRATIVE: CASE EVENT DATE: 20191201
